FAERS Safety Report 5015961-X (Version None)
Quarter: 2006Q2

REPORT INFORMATION
  Report Type: 
  Country: None (occurrence: None)
  Receive Date: 20060531
  Receipt Date: 20060531
  Transmission Date: 20061013
  Serious: No
  Sender: FDA-Public Use
  Company Number: None

PATIENT
  Age: 36 Year
  Sex: Female
  Weight: 138.3471 kg

DRUGS (6)
  1. METHYLDOPA [Suspect]
     Indication: HYPERTENSION
     Dosage: 500 MG TWICE DAILY PO
     Route: 048
     Dates: start: 20060526, end: 20060529
  2. VITAMIN AND MINERAL PRENATAL SUPPLEMENT W/ FOLIC ACID CAP [Concomitant]
  3. VITAMIN E [Concomitant]
  4. ASCORBIC ACID [Concomitant]
  5. ASPIRIN [Concomitant]
  6. ZYRTEC [Concomitant]

REACTIONS (2)
  - HEADACHE [None]
  - HYPERTENSION [None]
